FAERS Safety Report 7726720-9 (Version None)
Quarter: 2011Q3

REPORT INFORMATION
  Report Type: 
  Country: None (occurrence: None)
  Receive Date: 20110902
  Receipt Date: 20110831
  Transmission Date: 20111222
  Serious: Yes (Death, Other)
  Sender: FDA-Public Use
  Company Number: PHEH2011US01036

PATIENT
  Sex: Female

DRUGS (4)
  1. VITAMIN B-12 [Concomitant]
     Route: 030
  2. ACTOS [Concomitant]
     Dosage: 30 MG, UNK
     Route: 048
  3. PANCREATIC ENZYMES [Concomitant]
     Route: 048
  4. SANDOSTATIN LAR [Suspect]
     Dosage: 30 MG, UNK

REACTIONS (4)
  - BLOOD CREATININE DECREASED [None]
  - INFECTION [None]
  - PAIN [None]
  - DEATH [None]
